FAERS Safety Report 9927012 (Version 1)
Quarter: 2014Q1

REPORT INFORMATION
  Report Type: Report from Study
  Country: CA (occurrence: CA)
  Receive Date: 20140226
  Receipt Date: 20140226
  Transmission Date: 20141002
  Serious: Yes (Other)
  Sender: FDA-Public Use
  Company Number: PHHY2014CA022700

PATIENT
  Age: 63 Year
  Sex: Female

DRUGS (2)
  1. CLOZARIL [Suspect]
     Dates: start: 20100909
  2. BACTROBAN//MUPIROCIN [Concomitant]

REACTIONS (1)
  - Breast cyst [Unknown]
